FAERS Safety Report 10239370 (Version 1)
Quarter: 2014Q2

REPORT INFORMATION
  Report Type: Report from Study
  Country: US (occurrence: US)
  Receive Date: 20140616
  Receipt Date: 20140616
  Transmission Date: 20141212
  Serious: No
  Sender: FDA-Public Use
  Company Number: US-ABBVIE-14P-163-1231088-00

PATIENT
  Age: 33 Year
  Sex: Female

DRUGS (5)
  1. LUPANETA PACK [Suspect]
     Indication: ENDOMETRIOSIS
     Dates: start: 20140418
  2. LUPANETA PACK [Suspect]
     Indication: PRODUCT USED FOR UNKNOWN INDICATION
     Dosage: TEVA PHARMACEUTICALS
     Route: 048
     Dates: start: 20140418
  3. MULTIVITAMIN [Concomitant]
     Indication: PRODUCT USED FOR UNKNOWN INDICATION
     Dosage: 1 PILL
     Route: 048
  4. METOFORMIN [Concomitant]
     Indication: MENSTRUAL CYCLE MANAGEMENT
     Dosage: DAILY
  5. APRI [Concomitant]
     Indication: PRODUCT USED FOR UNKNOWN INDICATION
     Dosage: 1 PILL
     Route: 048

REACTIONS (3)
  - Oropharyngeal pain [Not Recovered/Not Resolved]
  - Injection site pain [Not Recovered/Not Resolved]
  - Hypersensitivity [Not Recovered/Not Resolved]
